FAERS Safety Report 8772471 (Version 1)
Quarter: 2012Q4

REPORT INFORMATION
  Report Type: 
  Country: US (occurrence: US)
  Receive Date: 20120905
  Receipt Date: 20120905
  Transmission Date: 20130627
  Serious: No
  Sender: FDA-Public Use
  Company Number: US-B.I. PHARMACEUTICALS,INC./RIDGEFIELD-2012-BP-21126BP

PATIENT
  Sex: Female

DRUGS (8)
  1. PRADAXA [Suspect]
     Indication: CARDIAC DISORDER
     Dosage: 300 mg
     Route: 048
     Dates: start: 2011, end: 201207
  2. ESCITALOPRAM [Concomitant]
     Indication: CARDIAC DISORDER
     Dosage: 10 mg
     Route: 048
  3. LEVOTHYROXINE [Concomitant]
     Indication: CARDIAC DISORDER
     Dosage: 50 mg
     Route: 048
  4. PRAMIPEXOLE [Concomitant]
     Indication: DEMENTIA
     Dosage: 0.25 mg
     Route: 048
  5. LISINOPRIL [Concomitant]
     Indication: CARDIAC DISORDER
     Dosage: 10 mg
     Route: 048
  6. FUROSEMIDE [Concomitant]
     Indication: FLUID RETENTION
     Route: 048
  7. RANITIDINE [Concomitant]
     Indication: GASTRIC DISORDER
     Dosage: 150 mg
     Route: 048
  8. ARICEPT [Concomitant]
     Dosage: 5 mg
     Route: 048

REACTIONS (4)
  - Gastric ulcer haemorrhage [Recovered/Resolved]
  - Epistaxis [Recovered/Resolved]
  - Gingival bleeding [Recovered/Resolved]
  - Hypotension [Recovered/Resolved]
